FAERS Safety Report 19596488 (Version 2)
Quarter: 2021Q3

REPORT INFORMATION
  Report Type: Spontaneous
  Country: NL (occurrence: IE)
  Receive Date: 20210722
  Receipt Date: 20210805
  Transmission Date: 20211014
  Serious: Yes (Hospitalization, Other)
  Sender: FDA-Public Use
  Company Number: IE-FRESENIUS KABI-FK202107338

PATIENT
  Age: 37 Year
  Sex: Female

DRUGS (7)
  1. PETHIDINE [Suspect]
     Active Substance: MEPERIDINE
     Indication: PRODUCT USED FOR UNKNOWN INDICATION
     Dosage: AT 08:10 50MG ADMINISTERED, AT 08:13 REMAINING 50MG ADMINISTERED
     Route: 042
  2. LUTROPIN ALFA [Concomitant]
     Active Substance: LUTROPIN ALFA
     Indication: INFERTILITY
     Dosage: UNK
     Route: 058
     Dates: start: 20201003
  3. DIAZEPAM. [Suspect]
     Active Substance: DIAZEPAM
     Indication: PRODUCT USED FOR UNKNOWN INDICATION
     Dosage: AT 08:10 5MG ADMINISTERED, AT 08:13 REMAINING 5MG ADMINISTERED
     Route: 065
     Dates: start: 20201014
  4. ONDANSETRON [Suspect]
     Active Substance: ONDANSETRON
     Indication: PRODUCT USED FOR UNKNOWN INDICATION
     Dosage: AT 08:10 4MG
     Route: 042
     Dates: start: 20201014
  5. SODIUM CHLORIDE 0.9% (MANUFACTURER UNKNOWN) [Suspect]
     Active Substance: SODIUM CHLORIDE
     Indication: PRODUCT USED FOR UNKNOWN INDICATION
     Dosage: AT 08:10 IV FLUIDS NACL 250MLS INFUSING, AT 08:40 IVF 250MLS FINISHED
     Route: 042
  6. CHORIOGONADOTROPIN ALFA [Concomitant]
     Active Substance: CHORIOGONADOTROPIN ALFA
     Indication: INFERTILITY
     Dosage: SINGLE DOSE
     Route: 058
     Dates: start: 20201012
  7. FOLLITROPIN ALFA [Concomitant]
     Active Substance: FOLLITROPIN ALFA
     Indication: INFERTILITY
     Route: 058
     Dates: start: 20201003

REACTIONS (10)
  - Coma scale abnormal [Recovered/Resolved]
  - Pallor [Recovered/Resolved]
  - Moaning [Recovered/Resolved]
  - Pulse abnormal [Recovered/Resolved]
  - Pulse absent [Recovered/Resolved]
  - Snoring [Recovered/Resolved]
  - Lip dry [Recovered/Resolved]
  - Fatigue [Recovered/Resolved]
  - Extremity contracture [Recovered/Resolved]
  - Unresponsive to stimuli [Recovered/Resolved]

NARRATIVE: CASE EVENT DATE: 20201014
